FAERS Safety Report 16332179 (Version 1)
Quarter: 2019Q2

REPORT INFORMATION
  Report Type: Report from Study
  Country: US (occurrence: US)
  Receive Date: 20190520
  Receipt Date: 20190520
  Transmission Date: 20190711
  Serious: Yes (Hospitalization)
  Sender: FDA-Public Use
  Company Number: US-ACADIA PHARMACEUTICALS INC.-ACA-2019-012548

PATIENT
  Age: 66 Year
  Sex: Female
  Weight: 118 kg

DRUGS (59)
  1. KLONOPIN [Concomitant]
     Active Substance: CLONAZEPAM
     Indication: ANXIETY
     Dosage: 0.5 MG, TID
     Route: 048
  2. KLONOPIN [Concomitant]
     Active Substance: CLONAZEPAM
     Dosage: 0.5 MG, TID
     Route: 048
     Dates: start: 20190503
  3. LASIX [Concomitant]
     Active Substance: FUROSEMIDE
     Dosage: 20 MG INJECTION
     Dates: start: 20190222, end: 20190222
  4. ANECTINE [Concomitant]
     Active Substance: SUCCINYLCHOLINE CHLORIDE
     Indication: PRODUCT USED FOR UNKNOWN INDICATION
     Dosage: 100MG/5ML
     Dates: start: 20190220
  5. PARCOPA [Concomitant]
     Active Substance: CARBIDOPA\LEVODOPA
     Dosage: 25/100 4 TIMES A DAY
     Route: 048
     Dates: start: 20190219, end: 20190221
  6. KLONOPIN [Concomitant]
     Active Substance: CLONAZEPAM
     Dosage: 0.5 MG, TID
     Route: 048
     Dates: start: 20190222
  7. PREVACID [Concomitant]
     Active Substance: LANSOPRAZOLE
     Dosage: 30 MG, BID
     Dates: start: 20190226
  8. ASPIRIN. [Concomitant]
     Active Substance: ASPIRIN
     Indication: DEEP VEIN THROMBOSIS
     Dosage: 325 MG, BID
     Dates: start: 20190220, end: 20190222
  9. PERCOCET [Concomitant]
     Active Substance: ACETAMINOPHEN\OXYCODONE HYDROCHLORIDE
     Dosage: 5-325 MG EVERY 6 HOURS AS NEEDED
     Route: 048
     Dates: start: 20190220, end: 20190222
  10. MORPHINE [Concomitant]
     Active Substance: MORPHINE
     Indication: PRODUCT USED FOR UNKNOWN INDICATION
     Dosage: 4 MG/ML 2 MG PRN
     Dates: start: 20190218, end: 20190222
  11. CLARITIN [Concomitant]
     Active Substance: LORATADINE
     Indication: HYPERSENSITIVITY
     Dosage: 10 MG, QD
     Route: 048
  12. PREVACID [Concomitant]
     Active Substance: LANSOPRAZOLE
     Indication: GASTROOESOPHAGEAL REFLUX DISEASE
     Dosage: 30 MG, BID
     Route: 048
  13. PERFOROMIST [Concomitant]
     Active Substance: FORMOTEROL FUMARATE DIHYDRATE
     Indication: PRODUCT USED FOR UNKNOWN INDICATION
     Dosage: 20 MCG/2ML PRN
     Route: 048
  14. EPIPEN [Concomitant]
     Active Substance: EPINEPHRINE
     Indication: PRODUCT USED FOR UNKNOWN INDICATION
     Dosage: 0.3 ML UNDER SKN ONCE FOR ONE DOSE
  15. ASPIRIN. [Concomitant]
     Active Substance: ASPIRIN
     Dosage: 325 MG, BID
     Route: 048
     Dates: start: 20190407
  16. LASIX [Concomitant]
     Active Substance: FUROSEMIDE
     Indication: PRODUCT USED FOR UNKNOWN INDICATION
     Dosage: 40 MG, BID
     Dates: start: 20190219, end: 20190221
  17. ZOFRAN [Concomitant]
     Active Substance: ONDANSETRON HYDROCHLORIDE
     Indication: PRODUCT USED FOR UNKNOWN INDICATION
     Dosage: 4 MG, PRN
     Dates: start: 20190218, end: 20190222
  18. IPRATROPIUM/ALBUTEROL [Concomitant]
     Active Substance: ALBUTEROL\IPRATROPIUM
     Indication: SKIN BACTERIAL INFECTION
     Dosage: 0.5-2.5 MG/3 ML EVERY 6 HOURS
     Dates: start: 20190219, end: 20190222
  19. SENNA [Concomitant]
     Active Substance: SENNA LEAF\SENNOSIDES\SENNOSIDES A AND B
     Indication: CONSTIPATION
     Dosage: DAILY AS NEEDED
  20. CLEOCIN [Concomitant]
     Active Substance: CLINDAMYCIN PHOSPHATE
     Indication: PRODUCT USED FOR UNKNOWN INDICATION
     Dosage: 600 MG/50 ML ONCE
     Dates: start: 20190220, end: 20190220
  21. CLEOCIN [Concomitant]
     Active Substance: CLINDAMYCIN PHOSPHATE
     Dosage: 600 MG/50  ML EVERY 8 HOURS
     Dates: start: 20190220, end: 20190221
  22. DESITIN [Concomitant]
     Active Substance: ZINC OXIDE
     Indication: PRODUCT USED FOR UNKNOWN INDICATION
     Dosage: 40% 2 TIMES A DAY
     Dates: start: 20190219, end: 20190222
  23. PROTONIX [Concomitant]
     Active Substance: PANTOPRAZOLE SODIUM
     Indication: PRODUCT USED FOR UNKNOWN INDICATION
     Dosage: 40 MG, BID
     Route: 065
     Dates: start: 20190219, end: 20190222
  24. NUPLAZID [Suspect]
     Active Substance: PIMAVANSERIN TARTRATE
     Dosage: 34 MG, QD
     Dates: start: 20190218
  25. LEXAPRO [Concomitant]
     Active Substance: ESCITALOPRAM OXALATE
     Indication: DEPRESSION
     Dosage: 15 MG, QD
     Route: 048
  26. MYLANTA [Concomitant]
     Active Substance: ALUMINUM HYDROXIDE\DIMETHICONE\MAGNESIUM HYDROXIDE
     Indication: NAUSEA
     Dosage: 400-400-40 MG/5 ML PRN
     Route: 048
     Dates: start: 20190226
  27. PERCOCET [Concomitant]
     Active Substance: ACETAMINOPHEN\OXYCODONE HYDROCHLORIDE
     Dosage: 5-325 MG EVERY 6 HOURS AS NEEDED
     Route: 048
     Dates: start: 20190226
  28. COLACE [Concomitant]
     Active Substance: DOCUSATE SODIUM
     Dosage: 100 MG, BID
     Dates: start: 20190219, end: 20190222
  29. BACITRACIN. [Concomitant]
     Active Substance: BACITRACIN
     Indication: PRODUCT USED FOR UNKNOWN INDICATION
     Dosage: 500 UNITS
     Dates: start: 20190218, end: 20190218
  30. XYLOCAINE [Concomitant]
     Active Substance: LIDOCAINE HYDROCHLORIDE
     Indication: PRODUCT USED FOR UNKNOWN INDICATION
     Dosage: 100MG/5 ML
     Dates: start: 20190220
  31. KETALAR [Concomitant]
     Active Substance: KETAMINE HYDROCHLORIDE
     Indication: PRODUCT USED FOR UNKNOWN INDICATION
     Dosage: 50 MG/ML
  32. CARBIDOPA/LEVODOPA [Concomitant]
     Active Substance: CARBIDOPA\LEVODOPA
     Indication: PARKINSON^S DISEASE
     Dosage: 25-100 MG 3 TAB FOUR TIMES A DAY
  33. GUAIFENESIN. [Concomitant]
     Active Substance: GUAIFENESIN
     Indication: SECRETION DISCHARGE
     Dosage: 30 ML BID
     Route: 048
     Dates: start: 20190424
  34. NUPLAZID [Suspect]
     Active Substance: PIMAVANSERIN TARTRATE
     Indication: PARKINSON^S DISEASE PSYCHOSIS
     Dosage: 17 MG, QD
     Dates: start: 20180315
  35. LEXAPRO [Concomitant]
     Active Substance: ESCITALOPRAM OXALATE
     Indication: ANXIETY
     Dosage: 10 MG, QD BEFORE LUNCH
     Route: 048
     Dates: start: 20190219
  36. SENNA [Concomitant]
     Active Substance: SENNA LEAF\SENNOSIDES\SENNOSIDES A AND B
     Dosage: 8.6 MG QHS
     Route: 048
     Dates: start: 20190226
  37. APOKYN [Concomitant]
     Active Substance: APOMORPHINE HYDROCHLORIDE
     Indication: PRODUCT USED FOR UNKNOWN INDICATION
     Dosage: 0.03 ML EVERY HOUR AS NEEDED
     Route: 048
  38. PERCOCET [Concomitant]
     Active Substance: ACETAMINOPHEN\OXYCODONE HYDROCHLORIDE
     Indication: PAIN
     Dosage: 5-325 MG EVERY 4 HOURS AS NEEDED
     Route: 048
     Dates: start: 20190220
  39. LOVENOX [Concomitant]
     Active Substance: ENOXAPARIN SODIUM
     Indication: PRODUCT USED FOR UNKNOWN INDICATION
     Dosage: 40 MG, QD
     Dates: start: 20190219, end: 20190219
  40. BUDESONIDE. [Concomitant]
     Active Substance: BUDESONIDE
     Indication: ACUTE PULMONARY OEDEMA
     Dosage: 0.5 MG/2ML INHALETION ORALLY 2 TIMES A DAY
     Route: 048
     Dates: start: 20190415
  41. PARCOPA [Concomitant]
     Active Substance: CARBIDOPA\LEVODOPA
     Dosage: 25/100 3 TABLETS FIVE TIMES PER DAY
     Route: 048
     Dates: start: 20190221, end: 20190222
  42. KLONOPIN [Concomitant]
     Active Substance: CLONAZEPAM
     Dosage: 0.5 MG BID AS NEEDED
     Route: 048
     Dates: start: 20190218, end: 20190219
  43. PREVACID [Concomitant]
     Active Substance: LANSOPRAZOLE
     Dosage: 30 MG, BID
     Dates: start: 20190219
  44. ZYRTEC [Concomitant]
     Active Substance: CETIRIZINE HYDROCHLORIDE
     Indication: PRODUCT USED FOR UNKNOWN INDICATION
     Dosage: 10 MG, PRN
     Route: 048
     Dates: start: 20190218, end: 20190222
  45. VITAMIN D3 [Concomitant]
     Active Substance: CHOLECALCIFEROL
     Indication: PRODUCT USED FOR UNKNOWN INDICATION
     Dosage: 1000 UNIT  DAILY
     Route: 048
     Dates: start: 20190219, end: 20190222
  46. ATIVAN [Concomitant]
     Active Substance: LORAZEPAM
     Indication: PRODUCT USED FOR UNKNOWN INDICATION
     Dosage: 1 MG, PRN
     Dates: start: 20190218, end: 20190222
  47. DIPRIVAN [Concomitant]
     Active Substance: PROPOFOL
     Indication: PRODUCT USED FOR UNKNOWN INDICATION
     Dosage: 200 MG, UNK
     Dates: start: 20190218, end: 20190218
  48. NORCURON [Concomitant]
     Active Substance: VECURONIUM BROMIDE
     Indication: PRODUCT USED FOR UNKNOWN INDICATION
     Dosage: 10 MG, UNK
     Dates: start: 20190220
  49. VERSED [Concomitant]
     Active Substance: MIDAZOLAM HYDROCHLORIDE
     Indication: PRODUCT USED FOR UNKNOWN INDICATION
     Dosage: 1MG/ML
     Dates: start: 20190220
  50. PARCOPA [Concomitant]
     Active Substance: CARBIDOPA\LEVODOPA
     Indication: PARKINSON^S DISEASE
     Dosage: 25/100 3 TABLETS QID 7AM, 11AM, 3PM AND 7PM
     Route: 048
     Dates: start: 20171018
  51. PARCOPA [Concomitant]
     Active Substance: CARBIDOPA\LEVODOPA
     Dosage: 25/100 3 TABLETS FOUR TIMES PER DAY
     Route: 048
     Dates: start: 20190222
  52. MYLANTA [Concomitant]
     Active Substance: ALUMINUM HYDROXIDE\DIMETHICONE\MAGNESIUM HYDROXIDE
     Indication: DYSPEPSIA
     Dosage: 30 ML AS NEEDED
     Route: 048
  53. MYLANTA [Concomitant]
     Active Substance: ALUMINUM HYDROXIDE\DIMETHICONE\MAGNESIUM HYDROXIDE
     Indication: FLATULENCE
     Dosage: 200-200-20MG/5 ML PRN
     Route: 048
  54. KENALOG [Concomitant]
     Active Substance: TRIAMCINOLONE ACETONIDE
     Indication: PRODUCT USED FOR UNKNOWN INDICATION
     Dosage: 0.1% APPLY ONE APPLICATION TOPICALLY TWO TIMES A DAY
  55. DULCOLAX NOS [Concomitant]
     Active Substance: BISACODYL OR DOCUSATE SODIUM
     Indication: PRODUCT USED FOR UNKNOWN INDICATION
     Dosage: 10 MG QD PRN
     Dates: start: 20190220, end: 20190222
  56. IPRATROPIUM/ALBUTEROL [Concomitant]
     Active Substance: ALBUTEROL\IPRATROPIUM
     Dosage: 0.5-2.5 MG/3 ML EVERY 6 HOURS
     Dates: start: 20190415
  57. SUBLIMAZE [Concomitant]
     Active Substance: FENTANYL CITRATE
     Indication: PRODUCT USED FOR UNKNOWN INDICATION
     Dosage: 50 MCG/ML
     Dates: start: 20190220
  58. CETIRIZINE [Concomitant]
     Active Substance: CETIRIZINE HYDROCHLORIDE
     Indication: HYPERSENSITIVITY
     Dosage: 10 MG, PRN
     Route: 048
     Dates: start: 20190226
  59. FORMOTEROL [Concomitant]
     Active Substance: FORMOTEROL
     Indication: SKIN BACTERIAL INFECTION
     Dosage: 20MCG/2ML TWO TIMES A DAY
     Route: 048
     Dates: start: 20190415

REACTIONS (1)
  - Ankle fracture [Not Recovered/Not Resolved]

NARRATIVE: CASE EVENT DATE: 20190218
